FAERS Safety Report 4302051-4 (Version None)
Quarter: 2004Q1

REPORT INFORMATION
  Report Type: 
  Country: None (occurrence: None)
  Receive Date: 20040220
  Receipt Date: 20040206
  Transmission Date: 20041129
  Serious: Yes (Hospitalization, Other)
  Sender: FDA-Public Use
  Company Number: 2004003992

PATIENT
  Age: 29 Year
  Sex: Female
  Weight: 60 kg

DRUGS (1)
  1. NEURONTIN [Suspect]
     Indication: NEURALGIA
     Dosage: ORAL
     Route: 048
     Dates: start: 20020501

REACTIONS (6)
  - ASTHENIA [None]
  - MUSCLE SPASMS [None]
  - MUSCLE TWITCHING [None]
  - POLLAKIURIA [None]
  - SENSORY DISTURBANCE [None]
  - URINARY INCONTINENCE [None]
